FAERS Safety Report 10962603 (Version 1)
Quarter: 2015Q1

REPORT INFORMATION
  Report Type: Spontaneous
  Country: US (occurrence: US)
  Receive Date: 20150327
  Receipt Date: 20150327
  Transmission Date: 20150721
  Serious: No
  Sender: FDA-Public Use
  Company Number: US-BAXTER-2015BAX011741

PATIENT
  Age: 28 Year
  Sex: Female
  Weight: 68.18 kg

DRUGS (2)
  1. GAMMAGARD LIQUID [Suspect]
     Active Substance: HUMAN IMMUNOGLOBULIN G
     Indication: IMMUNE ENHANCEMENT THERAPY
     Dosage: 1 GRAM/KG
     Route: 042
     Dates: start: 20141105, end: 20150226
  2. GAMMAGARD LIQUID [Suspect]
     Active Substance: HUMAN IMMUNOGLOBULIN G
     Dosage: 2 GM/KG DOSE SPLIT IN HALF GIVEN OVER 2 DAY PERIOD
     Route: 042
     Dates: start: 20150226

REACTIONS (2)
  - No adverse event [Recovered/Resolved]
  - Exposure during pregnancy [Not Recovered/Not Resolved]

NARRATIVE: CASE EVENT DATE: 20141105
